FAERS Safety Report 5210605-6 (Version None)
Quarter: 2006Q4

REPORT INFORMATION
  Report Type: 
  Country: None (occurrence: None)
  Receive Date: 20061106
  Receipt Date: 20060928
  Transmission Date: 20070319
  Serious: No
  Sender: FDA-Public Use
  Company Number: VNL_0225_2006

PATIENT
  Age: 68 Year
  Sex: Female
  Weight: 95.2554 kg

DRUGS (4)
  1. APOKYN [Suspect]
     Indication: PARKINSON'S DISEASE
     Dosage: 0.3 MG Q 3RD DAY SC
     Route: 058
     Dates: start: 20060811
  2. CARBIDOPA AND LEVODOPA [Concomitant]
  3. NAPROXEN [Concomitant]
  4. PROZAC [Concomitant]

REACTIONS (1)
  - CONSTIPATION [None]
